FAERS Safety Report 8203466-4 (Version None)
Quarter: 2012Q1

REPORT INFORMATION
  Report Type: 
  Country: None (occurrence: None)
  Receive Date: 20120313
  Receipt Date: 20120305
  Transmission Date: 20120608
  Serious: Yes (Hospitalization)
  Sender: FDA-Public Use
  Company Number: US-BIOGENIDEC-2012BI004373

PATIENT
  Age: 36 Year
  Sex: Male

DRUGS (10)
  1. NEURONTIN [Concomitant]
     Route: 048
  2. DILANTIN [Concomitant]
     Indication: CONVULSION
  3. ZONEGRAN [Concomitant]
     Indication: CONVULSION
  4. HYDROCODONE BITARTRATE [Concomitant]
  5. CITALOPRAM [Concomitant]
  6. COLACE [Concomitant]
  7. TYSABRI [Suspect]
     Indication: MULTIPLE SCLEROSIS
     Route: 042
     Dates: start: 20110614, end: 20111201
  8. AZATHIOPRINE [Concomitant]
     Indication: MULTIPLE SCLEROSIS
  9. PROTONIX [Concomitant]
  10. AMBIEN [Concomitant]
     Route: 048

REACTIONS (9)
  - MYELITIS TRANSVERSE [None]
  - POLYP [None]
  - SPINAL DISORDER [None]
  - BRONCHITIS [None]
  - FALL [None]
  - BRONCHOPNEUMONIA [None]
  - HYPERGLYCAEMIA [None]
  - NEUROMYELITIS OPTICA [None]
  - LACERATION [None]
